FAERS Safety Report 25076309 (Version 1)
Quarter: 2025Q1

REPORT INFORMATION
  Report Type: Spontaneous
  Country: US (occurrence: US)
  Receive Date: 20250313
  Receipt Date: 20250313
  Transmission Date: 20250409
  Serious: Yes (Other)
  Sender: SANDOZ
  Company Number: US-SANDOZ-SDZ2025US015848

PATIENT
  Sex: Male

DRUGS (1)
  1. ZOFRAN [Suspect]
     Active Substance: ONDANSETRON HYDROCHLORIDE
     Indication: Product use in unapproved indication
     Route: 065

REACTIONS (4)
  - Prostate cancer [Unknown]
  - Full blood count decreased [Unknown]
  - Red cell distribution width increased [Unknown]
  - Microcytic anaemia [Unknown]
